FAERS Safety Report 6793292-5 (Version None)
Quarter: 2010Q2

REPORT INFORMATION
  Report Type: 
  Country: None (occurrence: None)
  Receive Date: 20100624
  Receipt Date: 20100622
  Transmission Date: 20101027
  Serious: Yes (Other)
  Sender: FDA-Public Use
  Company Number: US-MYLANLABS-2009S1018934

PATIENT
  Age: 41 Year
  Sex: Female

DRUGS (12)
  1. CLOZAPINE [Suspect]
     Indication: SCHIZOAFFECTIVE DISORDER
     Dates: start: 20090901, end: 20100428
  2. CLOZAPINE [Suspect]
     Dates: start: 20100430
  3. CLOZAPINE [Suspect]
     Route: 048
  4. CLOZAPINE [Suspect]
     Route: 048
  5. CLOZAPINE [Suspect]
     Route: 048
     Dates: start: 20090901, end: 20100428
  6. CLOZAPINE [Suspect]
     Route: 048
     Dates: start: 20100430
  7. CLOZAPINE [Suspect]
     Route: 048
  8. CLOZAPINE [Suspect]
     Route: 048
  9. DEPAKOTE ER [Concomitant]
  10. CYMBALTA [Concomitant]
  11. OSCAL /00108001/ [Concomitant]
  12. MULTI-VITAMIN [Concomitant]

REACTIONS (2)
  - GRANULOCYTOPENIA [None]
  - LEUKOPENIA [None]
